FAERS Safety Report 19055372 (Version 1)
Quarter: 2021Q1

REPORT INFORMATION
  Report Type: Other
  Country: JP (occurrence: JP)
  Receive Date: 20210324
  Receipt Date: 20210324
  Transmission Date: 20210420
  Serious: Yes (Hospitalization, Other)
  Sender: FDA-Public Use
  Company Number: JP-BRECKENRIDGE PHARMACEUTICAL, INC.-2108402

PATIENT
  Age: 68 Year
  Sex: Male
  Weight: 58.65 kg

DRUGS (14)
  1. CLOBETASONE BUTYRATE [Concomitant]
     Active Substance: CLOBETASONE BUTYRATE
  2. AZILVA(AZILSARTAN) [Concomitant]
  3. LANSOPRAZOLE. [Suspect]
     Active Substance: LANSOPRAZOLE
  4. BETAMETHASONE. [Concomitant]
     Active Substance: BETAMETHASONE
  5. FEBURIC (FEBUXOSTAT) [Concomitant]
     Active Substance: FEBUXOSTAT
  6. DERMOVATE (CLOBETASOL PROPIONATE) [Concomitant]
  7. BESOFTEN (HEPARINOID) [Concomitant]
  8. FUROSEMIDE. [Concomitant]
     Active Substance: FUROSEMIDE
  9. ANORO (UMECLIDINIUM BROMIDE/VILANTEROL TRIFENATATE) [Concomitant]
  10. CILOSTAZOL. [Concomitant]
     Active Substance: CILOSTAZOL
  11. LIMAPROST ALFADEX [Concomitant]
     Active Substance: LIMAPROST
  12. LOTRIGA (OMEGA?3?ACID ETHYL ESTERS) [Concomitant]
  13. ASPIRIN. [Concomitant]
     Active Substance: ASPIRIN
  14. PETROLATUM SALICYLATE (SALICYLIC ACID) [Concomitant]

REACTIONS (1)
  - Renal failure [None]
